FAERS Safety Report 20650668 (Version 1)
Quarter: 2022Q1

REPORT INFORMATION
  Report Type: Spontaneous
  Country: US (occurrence: US)
  Receive Date: 20220329
  Receipt Date: 20220329
  Transmission Date: 20220423
  Serious: No
  Sender: FDA-Public Use
  Company Number: US-PFIZER INC-202101042117

PATIENT
  Age: 38 Year
  Sex: Female

DRUGS (1)
  1. XELJANZ XR [Suspect]
     Active Substance: TOFACITINIB CITRATE
     Dosage: 11 MG
     Dates: start: 20210701, end: 20210810

REACTIONS (6)
  - Product dose omission issue [Unknown]
  - Drug intolerance [Unknown]
  - Dyspepsia [Unknown]
  - Blood cholesterol increased [Unknown]
  - Liver disorder [Unknown]
  - Condition aggravated [Unknown]
